FAERS Safety Report 5905661-3 (Version None)
Quarter: 2008Q4

REPORT INFORMATION
  Report Type: 
  Country: None (occurrence: None)
  Receive Date: 20081001
  Receipt Date: 20081001
  Transmission Date: 20090506
  Serious: Yes (Hospitalization)
  Sender: FDA-Public Use
  Company Number: None

PATIENT
  Age: 65 Year
  Sex: Male

DRUGS (1)
  1. IOPAMIDOL [Suspect]
     Indication: DIAGNOSTIC PROCEDURE
     Dates: start: 20080918

REACTIONS (2)
  - ANAPHYLACTIC REACTION [None]
  - CONTRAST MEDIA REACTION [None]
